FAERS Safety Report 9145715 (Version 2)
Quarter: 2013Q2

REPORT INFORMATION
  Report Type: Spontaneous
  Country: US (occurrence: US)
  Receive Date: 20130307
  Receipt Date: 20130521
  Transmission Date: 20140414
  Serious: Yes (Other)
  Sender: FDA-Public Use
  Company Number: US-UCBSA-079913

PATIENT
  Age: 56 Year
  Sex: Female

DRUGS (2)
  1. CIMZIA [Suspect]
     Indication: CROHN^S DISEASE
     Dosage: 400 MG AT WEEKS 0, 2 AND 4
     Route: 058
     Dates: start: 20130126, end: 2013
  2. CORTISONE [Suspect]

REACTIONS (1)
  - Diabetes mellitus [Recovered/Resolved]
